FAERS Safety Report 8949389 (Version 1)
Quarter: 2012Q4

REPORT INFORMATION
  Report Type: 
  Country: GB (occurrence: GB)
  Receive Date: 20121206
  Receipt Date: 20121206
  Transmission Date: 20130627
  Serious: Yes (Death, Hospitalization, Disabling)
  Sender: FDA-Public Use
  Company Number: PHHY2012GB112017

PATIENT
  Age: 40 Year
  Sex: Male

DRUGS (4)
  1. TACROLIMUS [Suspect]
     Indication: PROPHYLAXIS AGAINST TRANSPLANT REJECTION
     Dosage: 2 mg, BID
     Route: 048
     Dates: start: 201201, end: 201205
  2. MYCOPHENOLATE MOFETIL [Concomitant]
  3. GANCICLOVIR [Concomitant]
  4. MAGNESIUM ASPARTATE HYDROCHLORIDE [Concomitant]

REACTIONS (4)
  - Death [Fatal]
  - Opsoclonus myoclonus [Not Recovered/Not Resolved]
  - Neuropathy peripheral [Not Recovered/Not Resolved]
  - Hypokinesia [Not Recovered/Not Resolved]
